FAERS Safety Report 14023469 (Version 5)
Quarter: 2018Q1

REPORT INFORMATION
  Report Type: Spontaneous
  Country: US (occurrence: US)
  Receive Date: 20170929
  Receipt Date: 20180122
  Transmission Date: 20180508
  Serious: Yes (Hospitalization)
  Sender: FDA-Public Use
  Company Number: US-JAZZ-2017-US-012512

PATIENT
  Age: 92 Year
  Sex: Female

DRUGS (6)
  1. PRIALT [Suspect]
     Active Substance: ZICONOTIDE ACETATE
     Dosage: 0.001 ?G, QH
     Route: 037
     Dates: start: 20170921
  2. BUPIVACAINE. [Suspect]
     Active Substance: BUPIVACAINE
     Indication: PAIN
     Dosage: 0.046 MG, QH
     Route: 037
  3. BUPIVACAINE. [Suspect]
     Active Substance: BUPIVACAINE
     Dosage: 0.002 MG, QH
     Route: 037
     Dates: start: 20170921
  4. MORPHINE [Suspect]
     Active Substance: MORPHINE
     Dosage: 7.54 MG, QH
     Route: 037
     Dates: start: 20170921
  5. MORPHINE [Suspect]
     Active Substance: MORPHINE
     Indication: PAIN
     Dosage: 0.022 MG, QH
     Route: 037
  6. PRIALT [Suspect]
     Active Substance: ZICONOTIDE ACETATE
     Indication: PAIN
     Dosage: 0.04 ?G, QH
     Route: 037

REACTIONS (3)
  - Withdrawal syndrome [Unknown]
  - Cardiac disorder [Unknown]
  - Device issue [Unknown]

NARRATIVE: CASE EVENT DATE: 201709
